FAERS Safety Report 17646420 (Version 2)
Quarter: 2020Q2

REPORT INFORMATION
  Report Type: Spontaneous
  Country: BE (occurrence: BE)
  Receive Date: 20200408
  Receipt Date: 20200508
  Transmission Date: 20200713
  Serious: Yes (Hospitalization)
  Sender: FDA-Public Use
  Company Number: BE-PFIZER INC-2020138741

PATIENT
  Age: 2 Year
  Sex: Male

DRUGS (1)
  1. CLINDAMYCIN PALMITATE HCL [Suspect]
     Active Substance: CLINDAMYCIN PALMITATE HYDROCHLORIDE
     Indication: SKIN INFECTION
     Dosage: 1 DF, SINGLE (20MG/KG IN 3 DOSAGES/TAKES; FIRST AND ONLY DOSE WAS GIVEN ON 14MAR2020 AT 6:30PM)
     Route: 048
     Dates: start: 20200314, end: 20200315

REACTIONS (1)
  - Priapism [Unknown]

NARRATIVE: CASE EVENT DATE: 20200314
